FAERS Safety Report 4809072-3 (Version None)
Quarter: 2005Q4

REPORT INFORMATION
  Report Type: 
  Country: None (occurrence: None)
  Receive Date: 20051021
  Receipt Date: 20040823
  Transmission Date: 20060501
  Serious: No
  Sender: FDA-Public Use
  Company Number: USA040876200

PATIENT
  Age: 41 Year
  Sex: Female
  Weight: 114 kg

DRUGS (10)
  1. ZYPREXA [Suspect]
     Indication: DEPRESSION
     Dosage: 2.5 MG AT BEDTIME
     Dates: start: 20020601
  2. PROZAC [Suspect]
     Indication: DEPRESSION
     Dosage: 20 MG DAY
  3. HUMALOG [Concomitant]
  4. LANTUS [Concomitant]
  5. AVANDIA [Concomitant]
  6. METFORMIN HCL [Concomitant]
  7. EFFEXOR [Concomitant]
  8. REMERON [Concomitant]
  9. ADDERALL 10 [Concomitant]
  10. LIPITOR [Concomitant]

REACTIONS (5)
  - DIABETES MELLITUS [None]
  - HYPOAESTHESIA [None]
  - LOW DENSITY LIPOPROTEIN INCREASED [None]
  - PAIN IN EXTREMITY [None]
  - WHITE BLOOD CELL COUNT DECREASED [None]
